FAERS Safety Report 9438052 (Version 1)
Quarter: 2013Q3

REPORT INFORMATION
  Report Type: Spontaneous
  Country: US (occurrence: US)
  Receive Date: 20130802
  Receipt Date: 20130802
  Transmission Date: 20140515
  Serious: No
  Sender: FDA-Public Use
  Company Number: US-BRISTOL-MYERS SQUIBB COMPANY-16743189

PATIENT
  Age: 80 Year
  Sex: Female

DRUGS (21)
  1. COUMADIN [Suspect]
     Dates: start: 20120413
  2. SINGULAIR [Concomitant]
  3. ALLEGRA [Concomitant]
  4. ATROVENT [Concomitant]
     Dosage: 1 DF= 2 PUFFS
  5. SEREVENT [Concomitant]
     Dosage: FORM: 50MCG 1 DF= 1 PUFF
  6. QVAR [Concomitant]
     Dosage: 1DF= 2 PUFFS
  7. NASOCORT [Concomitant]
     Dosage: 1DF= 2 SPRAYS
  8. PROVENTIL [Concomitant]
  9. FUROSEMIDE [Concomitant]
  10. LOVAZA [Concomitant]
  11. ZETIA [Concomitant]
  12. ATACAND [Concomitant]
  13. COREG [Concomitant]
  14. ASPIRIN [Concomitant]
     Dosage: 1DF= 81 UNIT NOS
  15. JANUVIA [Concomitant]
  16. COENZYME-Q10 [Concomitant]
  17. CALTRATE + D [Concomitant]
  18. GLUCOSAMINE [Concomitant]
  19. VITAMIN D [Concomitant]
     Dosage: 1DF= 2000UNITS
  20. BIOTIN [Concomitant]
  21. PANTHENOL [Concomitant]

REACTIONS (1)
  - Alopecia [Unknown]
